FAERS Safety Report 20290485 (Version 1)
Quarter: 2022Q1

REPORT INFORMATION
  Report Type: Spontaneous
  Country: US (occurrence: US)
  Receive Date: 20220104
  Receipt Date: 20220104
  Transmission Date: 20220423
  Serious: No
  Sender: FDA-Public Use
  Company Number: US-009507513-2112USA010227

PATIENT
  Sex: Female

DRUGS (1)
  1. STEGLATRO [Suspect]
     Active Substance: ERTUGLIFLOZIN PIDOLATE
     Dosage: 15 MILLIGRAM, DAILY
     Route: 048

REACTIONS (3)
  - Product dose omission issue [Unknown]
  - Inability to afford medication [Unknown]
  - No adverse event [Unknown]

NARRATIVE: CASE EVENT DATE: 20211228
